FAERS Safety Report 18953516 (Version 1)
Quarter: 2021Q1

REPORT INFORMATION
  Report Type: Spontaneous
  Country: US (occurrence: US)
  Receive Date: 20210301
  Receipt Date: 20210301
  Transmission Date: 20210420
  Serious: Yes (Hospitalization, Disabling)
  Sender: FDA-Public Use
  Company Number: None

PATIENT
  Age: 60 Year
  Sex: Female
  Weight: 60.3 kg

DRUGS (4)
  1. CELECOXID [Concomitant]
  2. EMERGEN C [Concomitant]
     Active Substance: MINERALS\VITAMINS
  3. CALCIUM 600MG W/VITAMIN D20 MCG [Concomitant]
  4. SUPREP BOWEL PREP [Suspect]
     Active Substance: MAGNESIUM SULFATE\POTASSIUM SULFATE\SODIUM SULFATE
     Indication: BOWEL PREPARATION
     Dosage: ?          QUANTITY:6 OUNCE(S);OTHER FREQUENCY:TWICE BEFORE;?
     Route: 048
     Dates: start: 20210222, end: 20210223

REACTIONS (11)
  - Vomiting [None]
  - Dysstasia [None]
  - Nausea [None]
  - Diarrhoea [None]
  - Headache [None]
  - Tinnitus [None]
  - Asthenia [None]
  - Abdominal pain [None]
  - Sleep disorder [None]
  - Hypertension [None]
  - Abdominal discomfort [None]

NARRATIVE: CASE EVENT DATE: 20210222
